FAERS Safety Report 10038390 (Version 1)
Quarter: 2014Q1

REPORT INFORMATION
  Report Type: Report from Study
  Country: US (occurrence: US)
  Receive Date: 20140326
  Receipt Date: 20140326
  Transmission Date: 20141002
  Serious: Yes (Other)
  Sender: FDA-Public Use
  Company Number: US-ALEXION-A201102263

PATIENT
  Sex: Male

DRUGS (4)
  1. SOLIRIS [Suspect]
     Indication: PAROXYSMAL NOCTURNAL HAEMOGLOBINURIA
     Dosage: UNK
     Route: 042
  2. CLARITIN                           /00413701/ [Concomitant]
     Indication: ASTHMA
     Dosage: UNK
  3. XANAX [Concomitant]
     Indication: INSOMNIA
     Dosage: UNK, PRN
  4. CIPRO                              /00697201/ [Concomitant]
     Indication: PROPHYLAXIS
     Dosage: UNK

REACTIONS (1)
  - Bone marrow failure [Unknown]
